FAERS Safety Report 25040539 (Version 1)
Quarter: 2025Q1

REPORT INFORMATION
  Report Type: Report from Study
  Country: AU (occurrence: AU)
  Receive Date: 20250305
  Receipt Date: 20250305
  Transmission Date: 20250409
  Serious: Yes (Other)
  Sender: ALEXION PHARMACEUTICALS
  Company Number: AU-AstraZeneca-CH-00816429A

PATIENT

DRUGS (1)
  1. ACALABRUTINIB [Suspect]
     Active Substance: ACALABRUTINIB
     Indication: Chronic lymphocytic leukaemia
     Route: 065

REACTIONS (6)
  - Cardiotoxicity [Unknown]
  - Platelet count abnormal [Unknown]
  - Fluid retention [Unknown]
  - Hypertension [Unknown]
  - Myalgia [Unknown]
  - Arthralgia [Unknown]
